FAERS Safety Report 11938949 (Version 1)
Quarter: 2016Q1

REPORT INFORMATION
  Report Type: Spontaneous
  Country: TR (occurrence: TR)
  Receive Date: 20160122
  Receipt Date: 20160122
  Transmission Date: 20160526
  Serious: Yes (Death)
  Sender: FDA-Public Use
  Company Number: PHHY2016TR006391

PATIENT
  Age: 29 Year
  Sex: Female

DRUGS (7)
  1. DOXAZOSIN [Suspect]
     Active Substance: DOXAZOSIN\DOXAZOSIN MESYLATE
     Indication: HYPERTENSIVE EMERGENCY
     Route: 065
  2. ADRENALINE [Suspect]
     Active Substance: EPINEPHRINE
     Indication: HYPOTENSION
     Route: 065
  3. SALINE SOLUTION [Suspect]
     Active Substance: SODIUM CHLORIDE
     Indication: HYPOTENSION
  4. NOREPINEPHRINE [Suspect]
     Active Substance: NOREPINEPHRINE\NOREPINEPHRINE BITARTRATE
     Indication: HYPOTENSION
     Route: 042
  5. DOPAMINE [Suspect]
     Active Substance: DOPAMINE\DOPAMINE HYDROCHLORIDE
     Indication: HYPOTENSION
     Route: 042
  6. ESMOLOL [Suspect]
     Active Substance: ESMOLOL HYDROCHLORIDE
     Indication: HYPERTENSIVE EMERGENCY
     Route: 042
  7. SALINE SOLUTION [Suspect]
     Active Substance: SODIUM CHLORIDE
     Indication: HYPERTENSIVE EMERGENCY
     Route: 042

REACTIONS (3)
  - Circulatory collapse [Fatal]
  - Hypotension [Fatal]
  - Drug ineffective [Fatal]
